FAERS Safety Report 10313773 (Version 1)
Quarter: 2014Q3

REPORT INFORMATION
  Report Type: Spontaneous
  Country: US (occurrence: US)
  Receive Date: 20140718
  Receipt Date: 20140718
  Transmission Date: 20150326
  Serious: Yes (Hospitalization)
  Sender: FDA-Public Use
  Company Number: US-MERZ NORTH AMERICA, INC.-14MRZ-00246

PATIENT
  Sex: Female

DRUGS (1)
  1. XEOMIN [Suspect]
     Active Substance: INCOBOTULINUMTOXINA
     Indication: MIGRAINE
     Dosage: 35 SITES ON PLANTIFF HEAD, NECK AND SHOULDERS
     Dates: start: 20120522

REACTIONS (12)
  - Tremor [None]
  - Pain of skin [None]
  - Neuralgia [None]
  - Migraine [None]
  - Pain in extremity [None]
  - Muscular weakness [None]
  - Limb discomfort [None]
  - Chest discomfort [None]
  - VIIth nerve paralysis [None]
  - Eyelid ptosis [None]
  - Gait disturbance [None]
  - Tachycardia [None]
